FAERS Safety Report 24389004 (Version 1)
Quarter: 2024Q4

REPORT INFORMATION
  Report Type: Spontaneous
  Country: US (occurrence: US)
  Receive Date: 20241002
  Receipt Date: 20241002
  Transmission Date: 20250115
  Serious: No
  Sender: BIOGEN
  Company Number: US-BIOGEN-2024BI01284006

PATIENT
  Age: 54 Year
  Sex: Male

DRUGS (1)
  1. SPINRAZA [Suspect]
     Active Substance: NUSINERSEN
     Indication: Spinal muscular atrophy
     Route: 050

REACTIONS (3)
  - Lower limb fracture [Unknown]
  - Therapeutic response shortened [Unknown]
  - Accident [Recovered/Resolved]

NARRATIVE: CASE EVENT DATE: 20240301
